FAERS Safety Report 21632230 (Version 1)
Quarter: 2022Q4

REPORT INFORMATION
  Report Type: Spontaneous
  Country: US (occurrence: None)
  Receive Date: 20221122
  Receipt Date: 20221122
  Transmission Date: 20230112
  Serious: Yes (Hospitalization)
  Sender: FDA-Public Use
  Company Number: None

PATIENT
  Sex: Female
  Weight: 77 kg

DRUGS (3)
  1. CARBOPLATIN [Suspect]
     Active Substance: CARBOPLATIN
     Dates: end: 20220419
  2. DURVALUMAB [Suspect]
     Active Substance: DURVALUMAB
     Dates: end: 20220628
  3. TAXOL [Suspect]
     Active Substance: PACLITAXEL
     Dates: end: 20220419

REACTIONS (1)
  - Radiation pneumonitis [None]

NARRATIVE: CASE EVENT DATE: 20221003
